FAERS Safety Report 14410030 (Version 1)
Quarter: 2018Q1

REPORT INFORMATION
  Report Type: Spontaneous
  Country: US (occurrence: US)
  Receive Date: 20180119
  Receipt Date: 20180119
  Transmission Date: 20180509
  Serious: No
  Sender: FDA-Public Use
  Company Number: US-PFIZER INC-2018022598

PATIENT
  Age: 92 Year
  Sex: Female
  Weight: 57.15 kg

DRUGS (1)
  1. LATANOPROST. [Suspect]
     Active Substance: LATANOPROST
     Dosage: 2.5ML

REACTIONS (3)
  - Abdominal pain upper [Unknown]
  - Cough [Unknown]
  - Viral infection [Unknown]
